FAERS Safety Report 17816342 (Version 1)
Quarter: 2020Q2

REPORT INFORMATION
  Report Type: Spontaneous
  Country: FR (occurrence: FR)
  Receive Date: 20200522
  Receipt Date: 20200522
  Transmission Date: 20200714
  Serious: Yes (Hospitalization)
  Sender: FDA-Public Use
  Company Number: FR-PFIZER INC-2020200443

PATIENT
  Age: 56 Year
  Sex: Female

DRUGS (2)
  1. XALKORI [Suspect]
     Active Substance: CRIZOTINIB
     Indication: LUNG ADENOCARCINOMA
     Dosage: 2 DF, 1X/DAY
     Route: 048
     Dates: start: 20200226, end: 20200425
  2. BISOPROLOL [Interacting]
     Active Substance: BISOPROLOL
     Indication: CONGESTIVE CARDIOMYOPATHY
     Dosage: 2.5 MG, 1X/DAY
     Route: 048
     Dates: start: 2017

REACTIONS (3)
  - Drug interaction [Recovering/Resolving]
  - Malaise [Recovering/Resolving]
  - Bradycardia [Recovering/Resolving]

NARRATIVE: CASE EVENT DATE: 202004
